FAERS Safety Report 7329386-5 (Version None)
Quarter: 2011Q1

REPORT INFORMATION
  Report Type: 
  Country: None (occurrence: None)
  Receive Date: 20110303
  Receipt Date: 20110228
  Transmission Date: 20110831
  Serious: Yes (Other)
  Sender: FDA-Public Use
  Company Number: FR-PFIZER INC-2011042701

PATIENT
  Age: 58 Year
  Sex: Male

DRUGS (1)
  1. TAHOR [Suspect]
     Dosage: 20 MG, 1X/DAY

REACTIONS (4)
  - EYELID PTOSIS [None]
  - MUSCULAR WEAKNESS [None]
  - MYALGIA [None]
  - MUSCLE FATIGUE [None]
